FAERS Safety Report 9135016 (Version 1)
Quarter: 2013Q1

REPORT INFORMATION
  Report Type: Report from Study
  Country: FR (occurrence: FR)
  Receive Date: 20130304
  Receipt Date: 20130304
  Transmission Date: 20140127
  Serious: Yes (Other)
  Sender: FDA-Public Use
  Company Number: FR-GENZYME-THYM-1003679

PATIENT
  Age: 23 Year
  Sex: Male

DRUGS (7)
  1. THYMOGLOBULINE [Suspect]
     Indication: BONE MARROW CONDITIONING REGIMEN
     Dosage: UNK
     Route: 065
     Dates: start: 20110815, end: 20110818
  2. THYMOGLOBULINE [Suspect]
     Dosage: UNK
     Route: 065
     Dates: start: 20110822
  3. EVOLTRA [Suspect]
     Indication: BONE MARROW CONDITIONING REGIMEN
     Dosage: UNK
     Route: 065
     Dates: start: 20110815, end: 20110818
  4. EVOLTRA [Suspect]
     Dosage: UNK
     Route: 065
     Dates: start: 20110822
  5. BUSILVEX [Suspect]
     Indication: BONE MARROW CONDITIONING REGIMEN
     Dosage: UNK
     Route: 065
     Dates: start: 20110815, end: 20110818
  6. BUSILVEX [Suspect]
     Dosage: UNK
     Route: 065
     Dates: start: 20110822
  7. CICLOSPORIN [Suspect]
     Indication: PRODUCT USED FOR UNKNOWN INDICATION
     Dosage: UNK
     Route: 065

REACTIONS (3)
  - Acute graft versus host disease in liver [Not Recovered/Not Resolved]
  - Adenovirus infection [Recovered/Resolved]
  - Cystitis [Recovered/Resolved]
